FAERS Safety Report 24904766 (Version 1)
Quarter: 2025Q1

REPORT INFORMATION
  Report Type: Spontaneous
  Country: CZ (occurrence: CZ)
  Receive Date: 20250130
  Receipt Date: 20250130
  Transmission Date: 20250409
  Serious: Yes (Other)
  Sender: SANDOZ
  Company Number: CZ-CELLTRION HEALTHCARE HUNGARY KFT-2024CZ004959

PATIENT
  Age: 19 Year
  Sex: Male

DRUGS (10)
  1. ADALIMUMAB [Suspect]
     Active Substance: ADALIMUMAB
     Dosage: 40 MG, Q2WEEKS
     Route: 058
     Dates: start: 201606
  2. ADALIMUMAB [Suspect]
     Active Substance: ADALIMUMAB
     Indication: Crohn^s disease
     Route: 058
     Dates: start: 201802
  3. INFLIXIMAB [Suspect]
     Active Substance: INFLIXIMAB
     Indication: Crohn^s disease
     Route: 042
     Dates: start: 201907
  4. REMICADE [Suspect]
     Active Substance: INFLIXIMAB
     Route: 042
     Dates: start: 201907, end: 202203
  5. REMICADE [Suspect]
     Active Substance: INFLIXIMAB
     Route: 042
     Dates: start: 202005
  6. REMICADE [Suspect]
     Active Substance: INFLIXIMAB
     Indication: Crohn^s disease
     Route: 042
  7. INFLIXIMAB [Suspect]
     Active Substance: INFLIXIMAB
     Dosage: 120 MG, Q2W
     Route: 058
     Dates: start: 202204
  8. INFLIXIMAB [Suspect]
     Active Substance: INFLIXIMAB
     Route: 042
  9. INFLIXIMAB [Suspect]
     Active Substance: INFLIXIMAB
     Indication: Crohn^s disease
     Route: 058
  10. IMURAN [Concomitant]
     Active Substance: AZATHIOPRINE
     Indication: Crohn^s disease
     Route: 065

REACTIONS (11)
  - Therapeutic product effect decreased [Unknown]
  - Therapeutic response unexpected [Unknown]
  - Faecal calprotectin increased [Recovered/Resolved]
  - Bowel movement irregularity [Recovered/Resolved]
  - Symptom recurrence [Recovered/Resolved]
  - Weight increased [Unknown]
  - Fatigue [Recovered/Resolved]
  - Abdominal pain [Recovered/Resolved]
  - Loss of therapeutic response [Unknown]
  - Overdose [Unknown]
  - Therapeutic product effect decreased [Unknown]

NARRATIVE: CASE EVENT DATE: 20211201
